FAERS Safety Report 8326965-3 (Version None)
Quarter: 2012Q2

REPORT INFORMATION
  Report Type: 
  Country: None (occurrence: None)
  Receive Date: 20120501
  Receipt Date: 20120417
  Transmission Date: 20120825
  Serious: Yes (Hospitalization)
  Sender: FDA-Public Use
  Company Number: US-ACTELION-A-US2012-61140

PATIENT

DRUGS (2)
  1. EPOPROSTENOL SODIUM [Suspect]
     Indication: PULMONARY ARTERIAL HYPERTENSION
     Dosage: 5 NG/KG, PER MIN
     Route: 042
     Dates: start: 20120110
  2. EPOPROSTENOL SODIUM [Suspect]
     Dosage: 9 NG/KG, PER MIN
     Route: 042
     Dates: start: 20120209

REACTIONS (11)
  - DYSPNOEA [None]
  - CYSTITIS [None]
  - URINARY TRACT INFECTION [None]
  - RETCHING [None]
  - DIZZINESS [None]
  - HEADACHE [None]
  - NAUSEA [None]
  - SEPSIS [None]
  - DYSGEUSIA [None]
  - VOMITING [None]
  - FLUSHING [None]
